FAERS Safety Report 16904882 (Version 6)
Quarter: 2020Q2

REPORT INFORMATION
  Report Type: Report from Study
  Country: US (occurrence: US)
  Receive Date: 20191010
  Receipt Date: 20200408
  Transmission Date: 20200713
  Serious: Yes (Life-Threatening, Other)
  Sender: FDA-Public Use
  Company Number: US-GLAXOSMITHKLINE-US2019TSO171614

PATIENT
  Age: 68 Year
  Sex: Female

DRUGS (3)
  1. NIRAPARIB [Suspect]
     Active Substance: NIRAPARIB
     Dosage: 200 MG, QD
     Route: 048
     Dates: start: 20200316
  2. NIRAPARIB [Suspect]
     Active Substance: NIRAPARIB
     Dosage: 100 MG, QD HS
     Route: 048
     Dates: start: 20191203
  3. NIRAPARIB [Suspect]
     Active Substance: NIRAPARIB
     Indication: FALLOPIAN TUBE CANCER
     Dosage: 300 MG, QPM WITHOUT FOOD
     Route: 048
     Dates: start: 20190916, end: 20190930

REACTIONS (5)
  - Disease progression [Unknown]
  - Insomnia [Recovered/Resolved]
  - Platelet count decreased [Recovered/Resolved]
  - Rash [Unknown]
  - Therapy change [Unknown]

NARRATIVE: CASE EVENT DATE: 20190917
